FAERS Safety Report 23271362 (Version 2)
Quarter: 2023Q4

REPORT INFORMATION
  Report Type: Spontaneous
  Country: NO (occurrence: None)
  Receive Date: 20231207
  Receipt Date: 20231218
  Transmission Date: 20240110
  Serious: No
  Sender: FDA-Public Use
  Company Number: NO-ROCHE-3470442

PATIENT

DRUGS (1)
  1. ROZLYTREK [Suspect]
     Active Substance: ENTRECTINIB
     Indication: Gene mutation
     Route: 065

REACTIONS (2)
  - Cardiotoxicity [Unknown]
  - Troponin increased [Unknown]
